FAERS Safety Report 23274928 (Version 1)
Quarter: 2023Q4

REPORT INFORMATION
  Report Type: Spontaneous
  Country: US (occurrence: US)
  Receive Date: 20231208
  Receipt Date: 20231208
  Transmission Date: 20240109
  Serious: Yes (Hospitalization, Other)
  Sender: FDA-Public Use
  Company Number: None

PATIENT
  Age: 15 Year
  Sex: Male

DRUGS (5)
  1. MEROPENEM [Suspect]
     Active Substance: MEROPENEM
     Indication: Retroperitoneal abscess
     Dosage: 20 MILLIGRAM/KILOGRAM, Q8H
  2. MIDAZOLAM [Suspect]
     Active Substance: MIDAZOLAM
     Indication: Psychomotor hyperactivity
     Dosage: 0.06 MILLIGRAM/KILOGRAM, QH
  3. RISPERIDONE [Concomitant]
     Active Substance: RISPERIDONE
     Indication: Product used for unknown indication
     Dosage: 0.75 MILLIGRAM, BID (EVERY 12 HR)
  4. FAMOTIDINE [Concomitant]
     Active Substance: FAMOTIDINE
     Indication: Prophylaxis against gastrointestinal ulcer
     Dosage: 20 MILLIGRAM
  5. CLONIDINE [Concomitant]
     Active Substance: CLONIDINE
     Indication: Hypertension
     Dosage: 0.2 MILLIGRAM, QD
     Route: 062

REACTIONS (2)
  - Myoclonus [Recovered/Resolved]
  - Off label use [Unknown]
